FAERS Safety Report 23324103 (Version 1)
Quarter: 2023Q4

REPORT INFORMATION
  Report Type: Report from Study
  Country: US (occurrence: US)
  Receive Date: 20231221
  Receipt Date: 20231221
  Transmission Date: 20240110
  Serious: Yes (Other)
  Sender: FDA-Public Use
  Company Number: US-ABBVIE-5467147

PATIENT
  Sex: Female
  Weight: 54 kg

DRUGS (10)
  1. HUMIRA [Suspect]
     Active Substance: ADALIMUMAB
     Indication: Psoriasis
     Dosage: CITRATE FREE?FORM STRENGTH 40 MILLIGRAMS
     Route: 058
     Dates: start: 20231019, end: 20231102
  2. HUMIRA [Suspect]
     Active Substance: ADALIMUMAB
     Dosage: CITRATE FREE?FORM STRENGTH 40 MILLIGRAMS?LAST ADMIN DATE 2023
     Route: 058
     Dates: start: 20230302
  3. HUMIRA [Suspect]
     Active Substance: ADALIMUMAB
     Dosage: CITRATE FREE?FORM STRENGTH 40 MILLIGRAMS
     Route: 058
     Dates: start: 20230608, end: 20231012
  4. HUMIRA [Suspect]
     Active Substance: ADALIMUMAB
     Dosage: CITRATE FREE?FORM STRENGTH 40 MILLIGRAMS?FIRST ADMIN DATE 2023
     Route: 058
  5. OMEPRAZOLE [Concomitant]
     Active Substance: OMEPRAZOLE
     Indication: Product used for unknown indication
     Dates: start: 202006
  6. FAMOTIDINE [Concomitant]
     Active Substance: FAMOTIDINE
     Indication: Product used for unknown indication
     Dosage: FORM STRENGTH 40 MILLIGRAMS
     Dates: start: 202006
  7. SUCRALFATE [Concomitant]
     Active Substance: SUCRALFATE
     Indication: Product used for unknown indication
     Dosage: FREQUENCY TEXT: 2 TBS 4 TIME A DAY
     Dates: start: 202006
  8. CYMBALTA [Concomitant]
     Active Substance: DULOXETINE HYDROCHLORIDE
     Indication: Product used for unknown indication
     Dosage: FORM STRENGTH 60 MILLIGRAMS
     Dates: start: 202301
  9. COVID-19 vaccine [Concomitant]
     Indication: COVID-19 immunisation
     Route: 030
  10. INFLUENZA VIRUS VACCINE [Concomitant]
     Active Substance: INFLUENZA VIRUS VACCINE
     Indication: Product used for unknown indication

REACTIONS (5)
  - Skin papilloma [Recovered/Resolved]
  - Skin papilloma [Recovered/Resolved]
  - Aphthous ulcer [Recovered/Resolved]
  - Lichen sclerosus [Unknown]
  - Dry eye [Unknown]

NARRATIVE: CASE EVENT DATE: 20230101
